FAERS Safety Report 20151573 (Version 1)
Quarter: 2021Q4

REPORT INFORMATION
  Report Type: Spontaneous
  Country: US (occurrence: None)
  Receive Date: 20211203
  Receipt Date: 20211203
  Transmission Date: 20220304
  Serious: No
  Sender: FDA-Public Use
  Company Number: None

PATIENT
  Age: 33 Year
  Sex: Male
  Weight: 64.8 kg

DRUGS (8)
  1. ALPRAZOLAM ER [Suspect]
     Active Substance: ALPRAZOLAM
     Indication: Anxiety
     Dosage: FREQUENCY : TWICE A DAY;?
     Route: 048
     Dates: start: 20210501, end: 20211202
  2. Alprazolam ER 1mg twice daily [Concomitant]
  3. 10mg Baclofen 3 times daily [Concomitant]
  4. DIETARY SUPPLEMENT [Concomitant]
     Active Substance: DIETARY SUPPLEMENT
  5. L-threonate [Concomitant]
  6. VITAMIN D [Concomitant]
     Active Substance: VITAMIN D NOS
  7. APIGENIN [Concomitant]
     Active Substance: APIGENIN
  8. MELATONIN [Concomitant]
     Active Substance: MELATONIN

REACTIONS (3)
  - Product substitution issue [None]
  - Therapeutic product effect decreased [None]
  - Withdrawal syndrome [None]

NARRATIVE: CASE EVENT DATE: 20210501
